FAERS Safety Report 8388970-0 (Version None)
Quarter: 2012Q2

REPORT INFORMATION
  Report Type: 
  Country: None (occurrence: None)
  Receive Date: 20120528
  Receipt Date: 20120525
  Transmission Date: 20120825
  Serious: No
  Sender: FDA-Public Use
  Company Number: US-PFIZER INC-2012127324

PATIENT
  Sex: Female
  Weight: 81.633 kg

DRUGS (4)
  1. ZOLOFT [Suspect]
     Dosage: 100 MG, DAILY
     Dates: start: 20120301, end: 20120101
  2. RITALIN [Concomitant]
     Indication: NARCOLEPSY
     Dosage: 10 MG, 2X/DAY
  3. ZOLOFT [Suspect]
     Indication: DEPRESSION
     Dosage: 100 MG, DAILY
     Dates: start: 20110201, end: 20111201
  4. ZOLOFT [Suspect]
     Dosage: 150 MG, DAILY
     Dates: start: 20120501

REACTIONS (1)
  - NAUSEA [None]
